FAERS Safety Report 10535295 (Version 3)
Quarter: 2014Q4

REPORT INFORMATION
  Report Type: Spontaneous
  Country: US (occurrence: US)
  Receive Date: 20141022
  Receipt Date: 20141216
  Transmission Date: 20150529
  Serious: Yes (Death, Hospitalization, Other)
  Sender: FDA-Public Use
  Company Number: US-GLAXOSMITHKLINE-US2014GSK008923

PATIENT
  Age: 86 Year
  Sex: Male

DRUGS (2)
  1. VOTRIENT [Suspect]
     Active Substance: PAZOPANIB HYDROCHLORIDE
     Indication: RENAL CANCER
  2. VOTRIENT [Suspect]
     Active Substance: PAZOPANIB HYDROCHLORIDE
     Indication: LUNG NEOPLASM MALIGNANT
     Dosage: 400 MG, QD
     Dates: start: 20130128, end: 20141106

REACTIONS (3)
  - Dialysis [Unknown]
  - Pneumonia [Fatal]
  - Arteriovenous fistula site haemorrhage [Unknown]

NARRATIVE: CASE EVENT DATE: 20141106
